FAERS Safety Report 7631491-0 (Version None)
Quarter: 2011Q3

REPORT INFORMATION
  Report Type: 
  Country: None (occurrence: None)
  Receive Date: 20110725
  Receipt Date: 20110603
  Transmission Date: 20111222
  Serious: Yes (Death, Life-Threatening, Hospitalization)
  Sender: FDA-Public Use
  Company Number: JP-BAYER-201015757BYL

PATIENT
  Age: 62 Year
  Sex: Male
  Weight: 55 kg

DRUGS (5)
  1. NEXAVAR [Suspect]
     Indication: HEPATIC NEOPLASM MALIGNANT
     Route: 048
     Dates: start: 20101105
  2. OMEPRAZOLE [Concomitant]
     Indication: PROPHYLAXIS AGAINST GASTROINTESTINAL ULCER
     Dosage: DAILY DOSE 40 MG
     Route: 042
     Dates: start: 20110129, end: 20110207
  3. KERATINAMIN [Concomitant]
     Indication: PROPHYLAXIS
     Dosage: UNK
     Route: 061
     Dates: start: 20101105
  4. LASIX [Concomitant]
     Dosage: DAILY DOSE 20 MG
     Route: 048
  5. PREDNISOLONE [Concomitant]
     Dosage: DAILY DOSE 15 MG
     Route: 042
     Dates: start: 20110206, end: 20110207

REACTIONS (6)
  - HEPATIC FAILURE [None]
  - INTERSTITIAL LUNG DISEASE [None]
  - OESOPHAGEAL VARICES HAEMORRHAGE [None]
  - HYPERAMMONAEMIA [None]
  - RASH [None]
  - HYPERTENSION [None]
